FAERS Safety Report 24937867 (Version 1)
Quarter: 2025Q1

REPORT INFORMATION
  Report Type: Spontaneous
  Country: US (occurrence: US)
  Receive Date: 20250206
  Receipt Date: 20250206
  Transmission Date: 20250409
  Serious: Yes (Hospitalization)
  Sender: TEVA
  Company Number: US-TEVA-VS-3292774

PATIENT
  Sex: Male

DRUGS (1)
  1. AUSTEDO XR [Suspect]
     Active Substance: DEUTETRABENAZINE
     Indication: Parkinson^s disease
     Route: 065
     Dates: start: 20241202, end: 20250103

REACTIONS (3)
  - Memory impairment [Unknown]
  - Drug ineffective for unapproved indication [Unknown]
  - Tremor [Not Recovered/Not Resolved]
